FAERS Safety Report 10824753 (Version 1)
Quarter: 2015Q1

REPORT INFORMATION
  Report Type: Report from Study
  Country: US (occurrence: US)
  Receive Date: 20150219
  Receipt Date: 20150219
  Transmission Date: 20150721
  Serious: No
  Sender: FDA-Public Use
  Company Number: US-ABBVIE-14K-163-1312640-00

PATIENT
  Age: 73 Year
  Sex: Female

DRUGS (3)
  1. HUMIRA [Suspect]
     Active Substance: ADALIMUMAB
     Indication: PSORIASIS
     Route: 065
     Dates: start: 20140910
  2. LANTUS [Concomitant]
     Active Substance: INSULIN GLARGINE
     Indication: PRODUCT USED FOR UNKNOWN INDICATION
  3. HUMIRA [Suspect]
     Active Substance: ADALIMUMAB
     Indication: RHEUMATOID ARTHRITIS

REACTIONS (9)
  - Cellulitis [Recovering/Resolving]
  - Pruritus [Unknown]
  - Musculoskeletal discomfort [Unknown]
  - Hearing impaired [Recovering/Resolving]
  - Pain [Not Recovered/Not Resolved]
  - Ear swelling [Recovering/Resolving]
  - Psoriasis [Not Recovered/Not Resolved]
  - Ear pain [Recovering/Resolving]
  - Gait disturbance [Unknown]

NARRATIVE: CASE EVENT DATE: 2014
